FAERS Safety Report 4654093-7 (Version None)
Quarter: 2005Q2

REPORT INFORMATION
  Report Type: 
  Country: None (occurrence: None)
  Receive Date: 20050504
  Receipt Date: 20050425
  Transmission Date: 20051028
  Serious: Yes (Life-Threatening, Other)
  Sender: FDA-Public Use
  Company Number: JP-2005-004480

PATIENT
  Age: 79 Year
  Sex: Female

DRUGS (2)
  1. PROSCOPE 300(IOPROMIDE) INFUSION [Suspect]
     Indication: COMPUTERISED TOMOGRAM ABDOMEN
     Dosage: 3 ML/SEC, INTRAVENOUS
     Route: 042
     Dates: start: 20050325, end: 20050325
  2. OLMETEC (OLMESARTAN MEDOXOMIL) [Suspect]
     Dosage: 1 TAB, ORAL
     Route: 048

REACTIONS (9)
  - ANAEMIA [None]
  - BLOOD PRESSURE SYSTOLIC DECREASED [None]
  - CARDIO-RESPIRATORY ARREST [None]
  - DYSPNOEA [None]
  - ELECTROCARDIOGRAM ST SEGMENT ELEVATION [None]
  - LOSS OF CONSCIOUSNESS [None]
  - MYDRIASIS [None]
  - SHOCK [None]
  - UNRESPONSIVE TO VERBAL STIMULI [None]
